FAERS Safety Report 23465925 (Version 1)
Quarter: 2024Q1

REPORT INFORMATION
  Report Type: Spontaneous
  Country: US (occurrence: US)
  Receive Date: 20240201
  Receipt Date: 20240201
  Transmission Date: 20240409
  Serious: Yes (Life-Threatening, Hospitalization)
  Sender: FDA-Public Use
  Company Number: US-MYLANLABS-2024M1009837

PATIENT
  Age: 38 Year
  Sex: Female

DRUGS (4)
  1. TRANEXAMIC ACID [Suspect]
     Active Substance: TRANEXAMIC ACID
     Indication: Vaginal haemorrhage
     Dosage: 1 GRAM
     Route: 065
  2. VITAMIN K [Suspect]
     Active Substance: PHYTONADIONE
     Indication: Vaginal haemorrhage
     Dosage: 10 MILLIGRAM
     Route: 065
  3. OXYTOCIN [Suspect]
     Active Substance: OXYTOCIN
     Indication: Vaginal haemorrhage
     Dosage: UNK; DOSE : 20UNITS
     Route: 042
  4. METHERGINE [Suspect]
     Active Substance: METHYLERGONOVINE MALEATE
     Indication: Vaginal haemorrhage
     Dosage: 0.2 MILLIGRAM
     Route: 042

REACTIONS (1)
  - Drug ineffective [Unknown]
